FAERS Safety Report 7342723-0 (Version None)
Quarter: 2011Q1

REPORT INFORMATION
  Report Type: 
  Country: None (occurrence: None)
  Receive Date: 20110301
  Receipt Date: 20110214
  Transmission Date: 20110831
  Serious: Yes (Hospitalization)
  Sender: FDA-Public Use
  Company Number: 2011MA001541

PATIENT
  Age: 84 Year
  Sex: Female

DRUGS (4)
  1. RANITIDINE [Concomitant]
  2. ADCAL-D3 [Concomitant]
  3. DIAZEPAM TAB [Suspect]
     Indication: ANXIETY
     Dosage: 2 MG; PO
     Route: 048
     Dates: start: 20101018
  4. BUPRENORPHINE [Suspect]
     Indication: SPINAL FRACTURE
     Dosage: 10 MCG;QH;TRSD
     Route: 062
     Dates: start: 20101213, end: 20110125

REACTIONS (1)
  - DYSPNOEA [None]
